FAERS Safety Report 4967119-8 (Version None)
Quarter: 2006Q2

REPORT INFORMATION
  Report Type: 
  Country: None (occurrence: None)
  Receive Date: 20060403
  Receipt Date: 20060328
  Transmission Date: 20061013
  Serious: Yes (Other)
  Sender: FDA-Public Use
  Company Number: S06-USA-00582-01

PATIENT
  Age: 76 Year
  Sex: Male

DRUGS (1)
  1. NAMENDA [Suspect]
     Indication: DEMENTIA
     Dosage: 5 MG BID PO
     Route: 048
     Dates: start: 20040801

REACTIONS (11)
  - CONDITION AGGRAVATED [None]
  - CONFUSIONAL STATE [None]
  - DEMENTIA [None]
  - DROOLING [None]
  - DYSARTHRIA [None]
  - HALLUCINATION, VISUAL [None]
  - INTERVERTEBRAL DISC DEGENERATION [None]
  - SLUGGISHNESS [None]
  - SOMNOLENCE [None]
  - STARING [None]
  - TONGUE DISORDER [None]
